FAERS Safety Report 17006532 (Version 1)
Quarter: 2019Q4

REPORT INFORMATION
  Report Type: Report from Study
  Country: AT (occurrence: AT)
  Receive Date: 20191107
  Receipt Date: 20191107
  Transmission Date: 20200122
  Serious: Yes (Death)
  Sender: FDA-Public Use
  Company Number: AT-MYLANLABS-2019M1106686

PATIENT
  Age: 62 Year
  Sex: Female
  Weight: 65 kg

DRUGS (3)
  1. IBUPROFEN. [Suspect]
     Active Substance: IBUPROFEN
     Indication: PSORIATIC ARTHROPATHY
     Dosage: 400 MILLIGRAM, QD
     Route: 065
     Dates: end: 20190505
  2. OLUMIANT [Suspect]
     Active Substance: BARICITINIB
     Indication: PSORIATIC ARTHROPATHY
     Dosage: 4 MILLIGRAM, QD
     Route: 048
     Dates: start: 20180130, end: 20190505
  3. APREDNISLON [Suspect]
     Active Substance: PREDNISOLONE
     Indication: PSORIATIC ARTHROPATHY
     Dosage: 2.5 MILLIGRAM, QD
     Route: 048

REACTIONS (1)
  - Sudden death [Fatal]

NARRATIVE: CASE EVENT DATE: 20190505
